FAERS Safety Report 18931484 (Version 1)
Quarter: 2021Q1

REPORT INFORMATION
  Report Type: Spontaneous
  Country: US (occurrence: US)
  Receive Date: 20210224
  Receipt Date: 20210224
  Transmission Date: 20210420
  Serious: No
  Sender: FDA-Public Use
  Company Number: US-BAUSCH-BL-2021-003178

PATIENT
  Sex: Female

DRUGS (3)
  1. PRIMIDONE. [Suspect]
     Active Substance: PRIMIDONE
     Indication: PRODUCT USED FOR UNKNOWN INDICATION
     Route: 048
  2. MYSOLINE [Suspect]
     Active Substance: PRIMIDONE
     Route: 048
     Dates: start: 20210119
  3. MYSOLINE [Suspect]
     Active Substance: PRIMIDONE
     Indication: PRODUCT USED FOR UNKNOWN INDICATION
     Route: 048
     Dates: end: 202011

REACTIONS (5)
  - Headache [Unknown]
  - Dizziness [Unknown]
  - Therapy interrupted [Unknown]
  - Insurance issue [Unknown]
  - Malaise [Unknown]

NARRATIVE: CASE EVENT DATE: 202011
